FAERS Safety Report 7381165-9 (Version None)
Quarter: 2011Q1

REPORT INFORMATION
  Report Type: 
  Country: None (occurrence: None)
  Receive Date: 20110324
  Receipt Date: 20110324
  Transmission Date: 20110831
  Serious: Yes (Other)
  Sender: FDA-Public Use
  Company Number: None

PATIENT
  Age: 34 Year
  Sex: Female

DRUGS (3)
  1. CYMBALTA [Suspect]
     Indication: ANXIETY
     Dosage: 1 CAPSULE ONCE A DAY PO
     Route: 048
     Dates: start: 20100915, end: 20110311
  2. LOTREL [Concomitant]
  3. TOPROL-XL [Concomitant]

REACTIONS (4)
  - DISTURBANCE IN ATTENTION [None]
  - HEPATIC ENZYME INCREASED [None]
  - FATIGUE [None]
  - WEIGHT INCREASED [None]
